FAERS Safety Report 19256359 (Version 1)
Quarter: 2021Q2

REPORT INFORMATION
  Report Type: Spontaneous
  Country: GB (occurrence: GB)
  Receive Date: 20210514
  Receipt Date: 20210514
  Transmission Date: 20210717
  Serious: Yes (Other)
  Sender: FDA-Public Use
  Company Number: GB-CIPLA LTD.-2021GB03457

PATIENT

DRUGS (8)
  1. CALCIUM FOLINATE [Suspect]
     Active Substance: LEUCOVORIN CALCIUM
     Indication: NEUROENDOCRINE CARCINOMA
     Dosage: UNK (FOLFIRI)
     Route: 065
     Dates: start: 202007, end: 202010
  2. IRINOTECAN [Suspect]
     Active Substance: IRINOTECAN
     Indication: NEUROENDOCRINE CARCINOMA
     Dosage: UNK
     Route: 065
     Dates: start: 202007, end: 202010
  3. ETOPOSIDE. [Suspect]
     Active Substance: ETOPOSIDE
     Indication: NEUROENDOCRINE CARCINOMA
     Dosage: UNK
     Route: 065
     Dates: start: 202007, end: 202010
  4. CARBOPLATIN. [Suspect]
     Active Substance: CARBOPLATIN
     Indication: NEUROENDOCRINE CARCINOMA
     Dosage: UNK
     Route: 065
     Dates: start: 202007, end: 202010
  5. OXALIPLATIN. [Suspect]
     Active Substance: OXALIPLATIN
     Indication: NEUROENDOCRINE CARCINOMA
     Dosage: UNK
     Route: 065
     Dates: start: 202007, end: 202010
  6. CALCIUM FOLINATE [Suspect]
     Active Substance: LEUCOVORIN CALCIUM
     Dosage: UNK (FOLFOX)
     Route: 065
     Dates: start: 202007, end: 202010
  7. FLUOROURACIL. [Suspect]
     Active Substance: FLUOROURACIL
     Indication: NEUROENDOCRINE CARCINOMA
     Dosage: UNK (FOLFIRI)
     Route: 065
     Dates: start: 202007, end: 202010
  8. FLUOROURACIL. [Suspect]
     Active Substance: FLUOROURACIL
     Dosage: UNK (FOLFOX)
     Route: 065
     Dates: start: 202007, end: 202010

REACTIONS (1)
  - Malignant neoplasm progression [Unknown]
